FAERS Safety Report 6238808-2 (Version None)
Quarter: 2009Q2

REPORT INFORMATION
  Report Type: 
  Country: None (occurrence: None)
  Receive Date: 20090622
  Receipt Date: 20090325
  Transmission Date: 20091009
  Serious: Yes (Hospitalization, Other)
  Sender: FDA-Public Use
  Company Number: GB-PFIZER INC-2009184169

PATIENT
  Age: 58 Year
  Sex: Female

DRUGS (4)
  1. LINEZOLID [Suspect]
     Indication: STAPHYLOCOCCAL SEPSIS
     Route: 048
  2. VENLAFAXINE [Interacting]
     Indication: DEPRESSION
  3. RIFAMPICIN [Concomitant]
     Route: 042
  4. VANCOMYCIN [Concomitant]
     Route: 042

REACTIONS (3)
  - DISORIENTATION [None]
  - DRUG INTERACTION [None]
  - SEROTONIN SYNDROME [None]
